FAERS Safety Report 4536785-3 (Version None)
Quarter: 2004Q4

REPORT INFORMATION
  Report Type: 
  Country: None (occurrence: None)
  Receive Date: 20041220
  Receipt Date: 20041207
  Transmission Date: 20050328
  Serious: Yes (Hospitalization)
  Sender: FDA-Public Use
  Company Number: K200401859

PATIENT
  Age: 59 Year
  Sex: Male

DRUGS (2)
  1. ALTACE [Suspect]
     Dosage: 10 MG, QD, ORAL
     Route: 048
     Dates: end: 20041011
  2. ALDACTONE [Suspect]
     Dosage: 75 MG, QD, ORAL
     Route: 048
     Dates: end: 20041011

REACTIONS (11)
  - ANURIA [None]
  - DEHYDRATION [None]
  - DIARRHOEA [None]
  - EPISTAXIS [None]
  - GENERAL PHYSICAL HEALTH DETERIORATION [None]
  - HAEMATURIA [None]
  - HAEMODIALYSIS [None]
  - HYPERKALAEMIA [None]
  - INTERNATIONAL NORMALISED RATIO INCREASED [None]
  - OVERDOSE [None]
  - RENAL FAILURE ACUTE [None]
